FAERS Safety Report 12714226 (Version 2)
Quarter: 2016Q3

REPORT INFORMATION
  Report Type: Spontaneous
  Country: US (occurrence: US)
  Receive Date: 20160905
  Receipt Date: 20160920
  Transmission Date: 20161109
  Serious: No
  Sender: FDA-Public Use
  Company Number: US-PFIZER INC-2016417314

PATIENT
  Age: 45 Year
  Sex: Female

DRUGS (4)
  1. LYRICA [Suspect]
     Active Substance: PREGABALIN
     Indication: NEURALGIA
  2. LYRICA [Suspect]
     Active Substance: PREGABALIN
     Indication: FIBROMYALGIA
  3. LYRICA [Suspect]
     Active Substance: PREGABALIN
     Indication: NEUROPATHY PERIPHERAL
     Dosage: 300 MG, 3X/DAY, (300 MG TAB T PO TID )
     Route: 048
  4. LYRICA [Suspect]
     Active Substance: PREGABALIN
     Indication: SCIATICA

REACTIONS (2)
  - Drug prescribing error [Unknown]
  - Pain [Unknown]
